FAERS Safety Report 5714573 (Version 4)
Quarter: 2013Q1

REPORT INFORMATION
  Report Type: Spontaneous
  Country: US (occurrence: US)
  Receive Date: 20050114
  Receipt Date: 20130228
  Transmission Date: 20140127
  Serious: No
  Sender: FDA-Public Use
  Company Number: US-GLAXOSMITHKLINE-A0515596A

PATIENT
  Sex: Female

DRUGS (19)
  1. IMITREX [Suspect]
     Indication: MIGRAINE
     Dosage: 1INJ AS REQUIRED
     Route: 058
  2. DEVICE [Suspect]
     Indication: PRODUCT USED FOR UNKNOWN INDICATION
     Route: 058
  3. SUMATRIPTAN [Suspect]
     Indication: PRODUCT USED FOR UNKNOWN INDICATION
  4. INSULIN [Concomitant]
  5. IMITREX [Concomitant]
     Route: 048
  6. ALTACE [Concomitant]
  7. NEXIUM [Concomitant]
  8. SYNTHROID [Concomitant]
  9. METOCLOPRAMIDE [Concomitant]
  10. CRESTOR [Concomitant]
  11. BONIVA [Concomitant]
  12. CYTOTEC [Concomitant]
  13. EFFEXOR [Concomitant]
  14. UNSPECIFIED MEDICATION [Concomitant]
  15. CLONOPIN [Concomitant]
  16. UNSPECIFIED MEDICATION [Concomitant]
  17. REGLAN [Concomitant]
  18. ZOFRAN [Concomitant]
  19. VITAMINS [Concomitant]

REACTIONS (5)
  - Drug ineffective [Recovered/Resolved]
  - Injection site pain [Unknown]
  - Product quality issue [Unknown]
  - Injection site pain [Unknown]
  - Device failure [Unknown]
